FAERS Safety Report 25958660 (Version 1)
Quarter: 2025Q4

REPORT INFORMATION
  Report Type: Spontaneous
  Country: US (occurrence: US)
  Receive Date: 20251024
  Receipt Date: 20251024
  Transmission Date: 20260117
  Serious: No
  Sender: INSUD PHARMA
  Company Number: US-INSUD PHARMA-2510US08397

PATIENT

DRUGS (1)
  1. SLYND [Suspect]
     Active Substance: DROSPIRENONE
     Indication: Product used for unknown indication
     Dosage: UNK
     Route: 048
     Dates: start: 2025

REACTIONS (5)
  - Inflammation [Unknown]
  - Abdominal distension [Unknown]
  - Intentional dose omission [Unknown]
  - Premenstrual syndrome [Unknown]
  - Abnormal withdrawal bleeding [Recovered/Resolved]

NARRATIVE: CASE EVENT DATE: 20250101
